FAERS Safety Report 8556856-4 (Version None)
Quarter: 2012Q3

REPORT INFORMATION
  Report Type: 
  Country: None (occurrence: None)
  Receive Date: 20120731
  Receipt Date: 20120727
  Transmission Date: 20120928
  Serious: Yes (Hospitalization)
  Sender: FDA-Public Use
  Company Number: DL2012-0610

PATIENT
  Age: 24 Year
  Sex: Female

DRUGS (3)
  1. MIFEPRISTONE (MIFEPREX) [Suspect]
     Indication: ABORTION INDUCED
     Dosage: 200 MG, ORAL
     Route: 048
     Dates: start: 20120410
  2. MISOPROSTOL [Suspect]
     Dosage: 800 MCG, BUCCAL
     Route: 002
  3. DOXYCYCLINE HCL [Concomitant]

REACTIONS (6)
  - NAUSEA [None]
  - FATIGUE [None]
  - FALLOPIAN TUBE PERFORATION [None]
  - MUSCULOSKELETAL PAIN [None]
  - UTERINE TENDERNESS [None]
  - HAEMORRHAGE [None]
